FAERS Safety Report 4453410-0 (Version None)
Quarter: 2004Q3

REPORT INFORMATION
  Report Type: 
  Country: None (occurrence: None)
  Receive Date: 20040902
  Receipt Date: 20040519
  Transmission Date: 20050211
  Serious: No
  Sender: FDA-Public Use
  Company Number: 200417925BWH

PATIENT
  Age: 83 Year
  Sex: Male
  Weight: 83.9154 kg

DRUGS (5)
  1. LEVITRA [Suspect]
     Indication: ERECTILE DYSFUNCTION
     Dosage: 10 MG, PRN, ORAL
     Route: 048
     Dates: start: 20040511
  2. LEVITRA [Suspect]
     Indication: ERECTILE DYSFUNCTION
     Dosage: 10 MG, PRN, ORAL
     Route: 048
     Dates: start: 20040514
  3. LEVITRA [Suspect]
     Indication: ERECTILE DYSFUNCTION
     Dosage: 10 MG, PRN, ORAL
     Route: 048
     Dates: start: 20040517
  4. DOXAZOSIN [Concomitant]
  5. VIAGRA [Concomitant]

REACTIONS (1)
  - DYSPEPSIA [None]
